FAERS Safety Report 6654667-8 (Version None)
Quarter: 2010Q1

REPORT INFORMATION
  Report Type: 
  Country: None (occurrence: None)
  Receive Date: 20100326
  Receipt Date: 20100320
  Transmission Date: 20100710
  Serious: Yes (Hospitalization)
  Sender: FDA-Public Use
  Company Number: US-AMGEN-QUU401050

PATIENT
  Sex: Female

DRUGS (2)
  1. ENBREL [Suspect]
     Indication: RHEUMATOID ARTHRITIS
     Route: 058
     Dates: start: 20020901
  2. METHOTREXATE [Concomitant]
     Dates: start: 20020101

REACTIONS (9)
  - ARTHRALGIA [None]
  - BREAST MASS [None]
  - GAIT DISTURBANCE [None]
  - MASS [None]
  - MUSCULAR WEAKNESS [None]
  - PARAESTHESIA [None]
  - RASH [None]
  - STAPHYLOCOCCAL INFECTION [None]
  - UPPER RESPIRATORY TRACT INFECTION [None]
